FAERS Safety Report 12247348 (Version 6)
Quarter: 2016Q3

REPORT INFORMATION
  Report Type: Report from Study
  Country: ES (occurrence: ES)
  Receive Date: 20160407
  Receipt Date: 20160824
  Transmission Date: 20161109
  Serious: Yes (Disabling, Other)
  Sender: FDA-Public Use
  Company Number: ES-ABBVIE-16P-144-1597201-00

PATIENT
  Age: 77 Year
  Sex: Male

DRUGS (2)
  1. DUODOPA [Suspect]
     Active Substance: CARBIDOPA\LEVODOPA
     Dosage: DOSE ADJUSTED
     Route: 050
  2. DUODOPA [Suspect]
     Active Substance: CARBIDOPA\LEVODOPA
     Indication: PARKINSON^S DISEASE
     Route: 050
     Dates: start: 201502

REACTIONS (14)
  - Hypersexuality [Unknown]
  - Choking [Unknown]
  - Aggression [Recovered/Resolved]
  - Fluid intake reduced [Unknown]
  - Obsessive thoughts [Unknown]
  - Dementia [Not Recovered/Not Resolved]
  - Decreased appetite [Unknown]
  - Psychomotor hyperactivity [Recovering/Resolving]
  - Nervousness [Recovering/Resolving]
  - Euphoric mood [Recovering/Resolving]
  - Hypophagia [Unknown]
  - Decubitus ulcer [Recovered/Resolved]
  - Weight decreased [Not Recovered/Not Resolved]
  - Decubitus ulcer [Unknown]

NARRATIVE: CASE EVENT DATE: 201504
